FAERS Safety Report 22207568 (Version 1)
Quarter: 2023Q2

REPORT INFORMATION
  Report Type: Spontaneous
  Country: CN (occurrence: CN)
  Receive Date: 20230413
  Receipt Date: 20230413
  Transmission Date: 20230721
  Serious: Yes (Hospitalization)
  Sender: FDA-Public Use
  Company Number: CN-PFIZER INC-PV202300065055

PATIENT
  Sex: Female
  Weight: 73 kg

DRUGS (3)
  1. EPIRUBICIN [Suspect]
     Active Substance: EPIRUBICIN
     Indication: Neoplasm
     Dosage: 125 MG, 1X/DAY
     Route: 041
     Dates: start: 20230320, end: 20230320
  2. CYCLOPHOSPHAMIDE [Suspect]
     Active Substance: CYCLOPHOSPHAMIDE
     Indication: Neoplasm
     Dosage: 950 MG, 1X/DAY
     Route: 041
     Dates: start: 20230320, end: 20230320
  3. PACLITAXEL [Suspect]
     Active Substance: PACLITAXEL
     Indication: Neoplasm
     Dosage: 500 MG, 1X/DAY
     Route: 041
     Dates: start: 20230320, end: 20230320

REACTIONS (2)
  - Myelosuppression [Recovering/Resolving]
  - Drug-induced liver injury [Recovering/Resolving]

NARRATIVE: CASE EVENT DATE: 20230327
